FAERS Safety Report 17307101 (Version 2)
Quarter: 2020Q1

REPORT INFORMATION
  Report Type: Report from Study
  Country: None (occurrence: US)
  Receive Date: 20200123
  Receipt Date: 20200213
  Transmission Date: 20200409
  Serious: Yes (Other)
  Sender: FDA-Public Use
  Company Number: US-ABBVIE-20K-163-3243367-00

PATIENT
  Sex: Female

DRUGS (1)
  1. HUMIRA [Suspect]
     Active Substance: ADALIMUMAB
     Indication: ARTHRALGIA
     Route: 058
     Dates: start: 20181130

REACTIONS (8)
  - Joint swelling [Recovering/Resolving]
  - Joint warmth [Recovering/Resolving]
  - Paraesthesia [Unknown]
  - Joint swelling [Unknown]
  - Joint effusion [Unknown]
  - Hypoaesthesia [Unknown]
  - Contusion [Unknown]
  - Arthralgia [Unknown]
